FAERS Safety Report 6402635-3 (Version None)
Quarter: 2009Q4

REPORT INFORMATION
  Report Type: 
  Country: None (occurrence: None)
  Receive Date: 20091009
  Receipt Date: 20090930
  Transmission Date: 20100525
  Serious: Yes (Hospitalization)
  Sender: FDA-Public Use
  Company Number: ADR34852009

PATIENT
  Age: 62 Year
  Sex: Female

DRUGS (17)
  1. CIPROFLOXACIN [Suspect]
     Indication: PROPHYLAXIS
     Dosage: 1 G ORAL
     Route: 048
     Dates: start: 20070117, end: 20070125
  2. CIPROFLOXACIN [Suspect]
     Indication: PROPHYLAXIS
     Dosage: 1 G ORAL
     Route: 048
     Dates: start: 20070213, end: 20070214
  3. ACYCLOVIR [Concomitant]
  4. CYCLOPHOSPHAMIDE [Concomitant]
  5. FLUCONAZOLE [Concomitant]
  6. PREDNISOLONE [Concomitant]
  7. RITUXIMAB [Concomitant]
  8. ESTRADIOL [Concomitant]
  9. GLYCERYL TRINITRATE [Concomitant]
  10. NORESTHISTERONE [Concomitant]
  11. OMEPRAZOLE [Concomitant]
  12. QUININE [Concomitant]
  13. ALLOPURINOL [Concomitant]
  14. DOXORUBICIN HCL [Concomitant]
  15. GRANISETRON HCL [Concomitant]
  16. RANITIDINE [Concomitant]
  17. VINCRISTINE [Concomitant]

REACTIONS (5)
  - HYPOTENSION [None]
  - INFUSION RELATED REACTION [None]
  - RASH ERYTHEMATOUS [None]
  - RASH MACULO-PAPULAR [None]
  - TACHYCARDIA [None]
